FAERS Safety Report 21018770 (Version 1)
Quarter: 2022Q2

REPORT INFORMATION
  Report Type: Report from Study
  Country: US (occurrence: US)
  Receive Date: 20220628
  Receipt Date: 20220628
  Transmission Date: 20220721
  Serious: Yes (Other)
  Sender: FDA-Public Use
  Company Number: US-ABBVIE-22K-163-4406850-00

PATIENT
  Sex: Male

DRUGS (4)
  1. HUMIRA [Suspect]
     Active Substance: ADALIMUMAB
     Indication: Rheumatoid arthritis
     Dosage: CITRATE FREE
     Route: 058
  2. MODERNA COVID-19 VACCINE [Concomitant]
     Active Substance: ELASOMERAN
     Indication: COVID-19 immunisation
     Dosage: 1ST DOSE
     Route: 030
  3. MODERNA COVID-19 VACCINE [Concomitant]
     Active Substance: ELASOMERAN
     Dosage: 2ND DOSE
     Route: 030
  4. MODERNA COVID-19 VACCINE [Concomitant]
     Active Substance: ELASOMERAN
     Dosage: BOOSTER  DOSE
     Route: 030

REACTIONS (12)
  - Intestinal obstruction [Unknown]
  - Gastric operation [Recovering/Resolving]
  - Urinary retention [Unknown]
  - Administration site bruise [Unknown]
  - Hypervolaemia [Unknown]
  - Weight decreased [Unknown]
  - Sinus disorder [Not Recovered/Not Resolved]
  - Decreased appetite [Unknown]
  - Hydrocele [Not Recovered/Not Resolved]
  - Swelling [Unknown]
  - Oropharyngeal pain [Not Recovered/Not Resolved]
  - Fungal infection [Unknown]
